FAERS Safety Report 8050329-3 (Version None)
Quarter: 2011Q4

REPORT INFORMATION
  Report Type: 
  Country: None (occurrence: None)
  Receive Date: 20111229
  Receipt Date: 20111213
  Transmission Date: 20120403
  Serious: Yes (Hospitalization)
  Sender: FDA-Public Use
  Company Number: 2011PROUSA00712

PATIENT
  Age: 69 Year
  Sex: Male
  Weight: 94.8 kg

DRUGS (12)
  1. METOPROLOL TARTRATE [Concomitant]
  2. DICYCLOMINE HCL (DICYCLOVERINE HYDROCHLORIDE) [Concomitant]
  3. PRILOSEC [Concomitant]
  4. CRESTOR [Concomitant]
  5. OXYCODONE HCL [Concomitant]
  6. ELIGARD [Concomitant]
  7. ASPIRIN [Concomitant]
  8. LUPRON [Concomitant]
  9. PROVENGE [Suspect]
     Indication: PROSTATE CANCER METASTATIC
     Dosage: 250 ML, SINGLE, INTRAVENOUS
     Route: 042
     Dates: start: 20111014, end: 20111014
  10. PROVENGE [Suspect]
     Dosage: 250 ML, SINGLE, INTRAVENOUS
     Route: 042
  11. PLAVIX [Concomitant]
  12. SENNOSIDES A+B (SENNOSIDE A+B) [Concomitant]

REACTIONS (15)
  - MALAISE [None]
  - LYMPHADENOPATHY [None]
  - SINUS CONGESTION [None]
  - MASS [None]
  - CHILLS [None]
  - ASTHENIA [None]
  - CEREBROVASCULAR ACCIDENT [None]
  - BODY TEMPERATURE INCREASED [None]
  - FATIGUE [None]
  - CAROTID ARTERY STENOSIS [None]
  - INFUSION RELATED REACTION [None]
  - HEART RATE INCREASED [None]
  - SOMNOLENCE [None]
  - BLOOD PRESSURE INCREASED [None]
  - OEDEMA PERIPHERAL [None]
